FAERS Safety Report 8516635-0 (Version None)
Quarter: 2012Q3

REPORT INFORMATION
  Report Type: 
  Country: None (occurrence: None)
  Receive Date: 20120718
  Receipt Date: 20120710
  Transmission Date: 20120928
  Serious: Yes (Death, Other)
  Sender: FDA-Public Use
  Company Number: DK-JNJFOC-20120706918

PATIENT
  Sex: Female

DRUGS (10)
  1. GESTODENE AND ETHINYL ESTRADIOL [Suspect]
     Indication: CONTRACEPTION
     Dosage: 30-40 MCG ETHINYLESTRADIOL WITH GESTODENE
     Route: 048
  2. NORGESTIMATE/ETHINYL ESTRADIOL [Suspect]
     Indication: CONTRACEPTION
     Dosage: 30-40 MCG ETHINYL ESTRADIOL
     Route: 048
  3. DESOGESTREL AND ETHINYL ESTRADIOL [Suspect]
     Dosage: 20 MCG ETHINYL ESTRADIOL
     Route: 048
  4. DESOGESTREL AND ETHINYL ESTRADIOL [Suspect]
     Indication: CONTRACEPTION
     Dosage: 30-40 MCG ETHINYL ESTRADIOL
     Route: 048
  5. DROSPIRENONE AND ETHINYL ESTRADIOL [Suspect]
     Indication: CONTRACEPTION
     Dosage: 30-40 MCG ETHINYLESTRADIOL
     Route: 048
  6. PROGESTIN INJ [Suspect]
     Indication: CONTRACEPTION
     Route: 048
  7. GESTODENE AND ETHINYL ESTRADIOL [Suspect]
     Dosage: 20 MCG ETHINYLESTRADIOL WITH GESTODENE
     Route: 048
  8. UNSPECIFIED VAGINAL RING [Suspect]
     Indication: CONTRACEPTION
     Route: 067
  9. ETHINYL ESTRADIOL AND NORETHINDRONE [Suspect]
     Indication: CONTRACEPTION
     Dosage: 30-40 MCG ETHINYL ESTRADIOL
     Route: 048
  10. LEVONORGESTREL + ETHINYL ESTRADIOL [Suspect]
     Indication: CONTRACEPTION
     Dosage: 30-40 MCG OF ETHINYL ESTRADIOL
     Route: 048

REACTIONS (1)
  - MYOCARDIAL INFARCTION [None]
